FAERS Safety Report 6858345-1 (Version None)
Quarter: 2010Q3

REPORT INFORMATION
  Report Type: 
  Country: None (occurrence: None)
  Receive Date: 20100719
  Receipt Date: 20080404
  Transmission Date: 20110219
  Serious: No
  Sender: FDA-Public Use
  Company Number: US-PFIZER INC-2008011425

PATIENT
  Sex: Female
  Weight: 68 kg

DRUGS (3)
  1. CHANTIX [Suspect]
     Indication: SMOKING CESSATION THERAPY
     Dates: start: 20080201, end: 20080301
  2. LAMICTAL [Concomitant]
  3. PAXIL [Concomitant]

REACTIONS (6)
  - ABNORMAL DREAMS [None]
  - COLD SWEAT [None]
  - DIZZINESS [None]
  - FLATULENCE [None]
  - MIDDLE INSOMNIA [None]
  - NIGHTMARE [None]
